FAERS Safety Report 18866065 (Version 2)
Quarter: 2021Q2

REPORT INFORMATION
  Report Type: Spontaneous
  Country: US (occurrence: US)
  Receive Date: 20210208
  Receipt Date: 20210524
  Transmission Date: 20210717
  Serious: No
  Sender: FDA-Public Use
  Company Number: US-PFIZER INC-2021116500

PATIENT
  Age: 49 Year
  Sex: Male

DRUGS (1)
  1. XELJANZ XR [Suspect]
     Active Substance: TOFACITINIB CITRATE
     Dosage: 11 MG
     Dates: start: 20200601

REACTIONS (5)
  - Muscular weakness [Unknown]
  - Nail pitting [Unknown]
  - Intentional product use issue [Unknown]
  - Rash [Unknown]
  - Drug ineffective [Unknown]
